FAERS Safety Report 17676410 (Version 2)
Quarter: 2020Q2

REPORT INFORMATION
  Report Type: Report from Study
  Country: US (occurrence: US)
  Receive Date: 20200416
  Receipt Date: 20200522
  Transmission Date: 20200714
  Serious: Yes (Other)
  Sender: FDA-Public Use
  Company Number: NVSC2020US101201

PATIENT
  Age: 47 Year
  Sex: Female
  Weight: 71.21 kg

DRUGS (2)
  1. GILENYA [Suspect]
     Active Substance: FINGOLIMOD HYDROCHLORIDE
     Indication: MULTIPLE SCLEROSIS
     Dosage: 0.5 MG, QD
     Route: 048
     Dates: start: 20181026, end: 20191004
  2. HCTZ [Suspect]
     Active Substance: HYDROCHLOROTHIAZIDE
     Indication: HYPERTENSION
     Route: 065

REACTIONS (11)
  - Ischaemic stroke [Unknown]
  - Constipation [Unknown]
  - Palpitations [Unknown]
  - Dehydration [Unknown]
  - Headache [Unknown]
  - Transient ischaemic attack [Unknown]
  - Cerebral infarction [Unknown]
  - Eye disorder [Unknown]
  - Hypertension [Unknown]
  - Sinus disorder [Unknown]
  - Stress [Unknown]

NARRATIVE: CASE EVENT DATE: 20190930
